FAERS Safety Report 19243586 (Version 6)
Quarter: 2022Q2

REPORT INFORMATION
  Report Type: Report from Study
  Country: CA (occurrence: CA)
  Receive Date: 20210511
  Receipt Date: 20220610
  Transmission Date: 20220721
  Serious: Yes (Other)
  Sender: FDA-Public Use
  Company Number: CA-OTSUKA-2021_003611

PATIENT
  Age: 81 Year
  Sex: Male

DRUGS (1)
  1. CEDAZURIDINE\DECITABINE [Suspect]
     Active Substance: CEDAZURIDINE\DECITABINE
     Indication: Myelodysplastic syndrome
     Dosage: 135 MG (100 MG CEDAZURIDINE AND 35 MG DECITABINE) QD, 1-4 OF 28 DAY CYCLE
     Route: 048
     Dates: start: 20201214

REACTIONS (13)
  - Dehydration [Unknown]
  - Upper limb fracture [Recovering/Resolving]
  - Pneumonia [Unknown]
  - White blood cell disorder [Unknown]
  - Constipation [Unknown]
  - Stomatitis [Recovered/Resolved]
  - Fall [Unknown]
  - Fatigue [Not Recovered/Not Resolved]
  - Oral candidiasis [Recovered/Resolved]
  - COVID-19 [Unknown]
  - Diarrhoea [Unknown]
  - Product use issue [Unknown]
  - Therapy interrupted [Unknown]

NARRATIVE: CASE EVENT DATE: 20210201
